FAERS Safety Report 7775114-9 (Version None)
Quarter: 2011Q3

REPORT INFORMATION
  Report Type: 
  Country: None (occurrence: None)
  Receive Date: 20110921
  Receipt Date: 20110906
  Transmission Date: 20111222
  Serious: Yes (Hospitalization)
  Sender: FDA-Public Use
  Company Number: JP-006157

PATIENT
  Age: 27 Year
  Sex: Female

DRUGS (2)
  1. HCG (HCG) [Suspect]
     Indication: OVULATION INDUCTION
  2. HMG /06269502/ (HMG) (NOT SPECIFIED) [Suspect]
     Indication: OVULATION INDUCTION

REACTIONS (2)
  - OVARIAN HYPERSTIMULATION SYNDROME [None]
  - CEREBRAL INFARCTION [None]
